FAERS Safety Report 8288551-3 (Version None)
Quarter: 2012Q2

REPORT INFORMATION
  Report Type: 
  Country: None (occurrence: None)
  Receive Date: 20120416
  Receipt Date: 20120319
  Transmission Date: 20120825
  Serious: Yes (Other)
  Sender: FDA-Public Use
  Company Number: TR-BAXTER-2012BAX000279

PATIENT
  Age: 34 Year
  Sex: Female
  Weight: 62 kg

DRUGS (2)
  1. EXTRANEAL [Suspect]
     Route: 033
     Dates: start: 20120315, end: 20120318
  2. PHYSIONEAL 40 %2.27 [Concomitant]
     Route: 065

REACTIONS (2)
  - ABDOMINAL PAIN UPPER [None]
  - PRODUCT COLOUR ISSUE [None]
